FAERS Safety Report 12795780 (Version 2)
Quarter: 2016Q4

REPORT INFORMATION
  Report Type: Spontaneous
  Country: BR (occurrence: BR)
  Receive Date: 20160929
  Receipt Date: 20161003
  Transmission Date: 20170207
  Serious: Yes (Other)
  Sender: FDA-Public Use
  Company Number: BR-PFIZER INC-2016451315

PATIENT
  Age: 65 Year
  Sex: Female
  Weight: 79 kg

DRUGS (3)
  1. CELECOXIBE TEUTO [Suspect]
     Active Substance: CELECOXIB
     Indication: BACK PAIN
  2. ABLOK PLUS [Concomitant]
     Active Substance: ATENOLOL\CHLORTHALIDONE
     Indication: HYPERTENSION
  3. CELECOXIBE TEUTO [Suspect]
     Active Substance: CELECOXIB
     Indication: ARTHRITIS
     Dosage: ONE TABLET (200 MG), 2X/DAY (EVERY 12 HOURS)
     Dates: start: 20160921

REACTIONS (2)
  - Arrhythmia [Recovered/Resolved]
  - Palpitations [Recovered/Resolved]

NARRATIVE: CASE EVENT DATE: 20160921
